FAERS Safety Report 8373790-3 (Version None)
Quarter: 2012Q2

REPORT INFORMATION
  Report Type: 
  Country: None (occurrence: None)
  Receive Date: 20120521
  Receipt Date: 20120404
  Transmission Date: 20120825
  Serious: Yes (Other)
  Sender: FDA-Public Use
  Company Number: US-ROCHE-791894

PATIENT
  Sex: Female
  Weight: 55.842 kg

DRUGS (2)
  1. SYNTHROID [Concomitant]
     Indication: PRODUCT USED FOR UNKNOWN INDICATION
  2. ACCUTANE [Suspect]
     Indication: ACNE
     Route: 065

REACTIONS (8)
  - CROHN'S DISEASE [None]
  - EMOTIONAL DISTRESS [None]
  - COLITIS MICROSCOPIC [None]
  - DEPRESSION [None]
  - OSTEOPENIA [None]
  - HAEMORRHOIDS [None]
  - INFLAMMATORY BOWEL DISEASE [None]
  - IRRITABLE BOWEL SYNDROME [None]
